FAERS Safety Report 10928554 (Version 1)
Quarter: 2015Q1

REPORT INFORMATION
  Report Type: Spontaneous
  Country: US (occurrence: None)
  Receive Date: 20150318
  Receipt Date: 20150318
  Transmission Date: 20150721
  Serious: Yes (Hospitalization, Other)
  Sender: FDA-Public Use
  Company Number: None

PATIENT
  Age: 48 Year
  Sex: Female

DRUGS (11)
  1. NAPROXEN SODIUM. [Concomitant]
     Active Substance: NAPROXEN SODIUM
  2. SALADS [Concomitant]
  3. IBUPROEN [Concomitant]
  4. AMLODIPINE [Concomitant]
     Active Substance: AMLODIPINE BESYLATE
  5. LEVETIRACETAM 500 MG TAB [Suspect]
     Active Substance: LEVETIRACETAM
     Indication: EPILEPSY
     Dosage: 60 2X DAILY BY MOUTH
     Route: 048
     Dates: start: 2010
  6. HYDROCO/APAP [Concomitant]
     Active Substance: ACETAMINOPHEN\HYDROCODONE
  7. ACETAMINOPHEN. [Concomitant]
     Active Substance: ACETAMINOPHEN
  8. CYCLOBENZAPRINE HCL [Concomitant]
     Active Substance: CYCLOBENZAPRINE HYDROCHLORIDE
  9. GLYBERIBE/METPHORMIN [Concomitant]
  10. METFORMIN [Concomitant]
     Active Substance: METFORMIN HYDROCHLORIDE
  11. HERBAL TEAS [Concomitant]
     Active Substance: HERBALS

REACTIONS (11)
  - Amnesia [None]
  - Deafness [None]
  - Hallucination [None]
  - Blindness [None]
  - Seizure [None]
  - Swelling [None]
  - Injury [None]
  - Loss of consciousness [None]
  - Fall [None]
  - Dysphemia [None]
  - Eye swelling [None]
